FAERS Safety Report 4755967-9 (Version None)
Quarter: 2005Q3

REPORT INFORMATION
  Report Type: 
  Country: None (occurrence: None)
  Receive Date: 20050826
  Receipt Date: 20041109
  Transmission Date: 20060218
  Serious: Yes (Death)
  Sender: FDA-Public Use
  Company Number: USA-2003-0008936

PATIENT
  Age: 49 Year
  Sex: Male
  Weight: 89 kg

DRUGS (12)
  1. OXYCONTIN [Suspect]
     Indication: PAIN
     Dosage: 40 MG, BID, ORAL
     Route: 048
  2. HYDROCODONE BITARTRATE [Suspect]
     Indication: PAIN
  3. CARISOPRODOL [Suspect]
  4. MEPROBAMATE [Suspect]
  5. NEFAZODONE HCL [Suspect]
  6. ALPHAPRODINE (ALPHAPRODINE) [Suspect]
  7. GLUTETHIMIDE [Suspect]
  8. NIKETHAMIDE [Suspect]
  9. ZOLPIDEM TARTRATE [Suspect]
  10. NEURONTIN [Concomitant]
  11. SERZONE [Concomitant]
  12. ZESTRIL [Concomitant]

REACTIONS (5)
  - ACCIDENTAL OVERDOSE [None]
  - ARTHRALGIA [None]
  - HYPOAESTHESIA [None]
  - MULTIPLE DRUG OVERDOSE [None]
  - PAIN [None]
